FAERS Safety Report 6197712-9 (Version None)
Quarter: 2009Q2

REPORT INFORMATION
  Report Type: 
  Country: None (occurrence: None)
  Receive Date: 20090521
  Receipt Date: 20090519
  Transmission Date: 20091009
  Serious: Yes (Hospitalization, Other)
  Sender: FDA-Public Use
  Company Number: DE-PFIZER INC-2009185571

PATIENT
  Age: 74 Year

DRUGS (4)
  1. AMPICILLIN AND SULBACTAM [Suspect]
     Route: 042
  2. BISOPROLOL [Concomitant]
  3. FERROSANOL DUODENAL [Concomitant]
     Indication: ANAEMIA
  4. PHENPROCOUMON [Concomitant]
     Indication: THROMBOSIS PROPHYLAXIS

REACTIONS (2)
  - CARDIAC FAILURE [None]
  - ENTEROCOLITIS HAEMORRHAGIC [None]
